FAERS Safety Report 6636441-1 (Version None)
Quarter: 2010Q1

REPORT INFORMATION
  Report Type: 
  Country: None (occurrence: None)
  Receive Date: 20100226
  Receipt Date: 20090723
  Transmission Date: 20100710
  Serious: Yes (Hospitalization)
  Sender: FDA-Public Use
  Company Number: WAES 0907USA05528

PATIENT
  Age: 84 Year
  Sex: Female

DRUGS (1)
  1. PRINIVIL [Suspect]
     Dosage: PO
     Route: 048

REACTIONS (2)
  - DEHYDRATION [None]
  - RENAL FAILURE ACUTE [None]
